FAERS Safety Report 9719281 (Version 1)
Quarter: 2013Q4

REPORT INFORMATION
  Report Type: Spontaneous
  Country: NL (occurrence: NL)
  Receive Date: 20131127
  Receipt Date: 20131127
  Transmission Date: 20140711
  Serious: Yes (Other)
  Sender: FDA-Public Use
  Company Number: PHHY2013NL136071

PATIENT
  Age: 53 Year
  Sex: Female

DRUGS (2)
  1. ZOMETA [Suspect]
     Dosage: UNK UKN, UNK
  2. AROMASIN [Concomitant]
     Dosage: UNK UKN, UNK

REACTIONS (3)
  - Osteoporosis [Unknown]
  - Lower limb fracture [Unknown]
  - Fall [Unknown]
